FAERS Safety Report 4807487-0 (Version None)
Quarter: 2005Q4

REPORT INFORMATION
  Report Type: 
  Country: None (occurrence: None)
  Receive Date: 20051024
  Receipt Date: 20051010
  Transmission Date: 20060501
  Serious: Yes (Death, Hospitalization)
  Sender: FDA-Public Use
  Company Number: US-JNJFOC-20051002162

PATIENT
  Sex: Male

DRUGS (1)
  1. REGRANEX [Suspect]
     Route: 065

REACTIONS (2)
  - DEATH [None]
  - HOSPITALISATION [None]
